FAERS Safety Report 23427555 (Version 10)
Quarter: 2025Q1

REPORT INFORMATION
  Report Type: Spontaneous
  Country: JP (occurrence: JP)
  Receive Date: 20240122
  Receipt Date: 20250217
  Transmission Date: 20250409
  Serious: Yes (Other)
  Sender: JOHNSON AND JOHNSON
  Company Number: JP-JNJFOC-20240151680

PATIENT
  Age: 55 Year
  Sex: Female
  Weight: 60 kg

DRUGS (29)
  1. OPSUMIT [Suspect]
     Active Substance: MACITENTAN
     Indication: Pulmonary arterial hypertension
     Route: 048
  2. OPSUMIT [Suspect]
     Active Substance: MACITENTAN
     Indication: Pulmonary arterial hypertension
  3. UPTRAVI [Suspect]
     Active Substance: SELEXIPAG
     Indication: Pulmonary arterial hypertension
     Route: 048
  4. UPTRAVI [Suspect]
     Active Substance: SELEXIPAG
     Indication: Pulmonary arterial hypertension
     Dosage: 0.4-2.0MG PER DAY
     Route: 048
  5. UPTRAVI [Suspect]
     Active Substance: SELEXIPAG
     Route: 048
  6. UPTRAVI [Suspect]
     Active Substance: SELEXIPAG
     Route: 048
  7. HYDROXYCHLOROQUINE SULFATE [Suspect]
     Active Substance: HYDROXYCHLOROQUINE SULFATE
     Indication: Mixed connective tissue disease
     Route: 048
  8. PREDNISOLONE [Concomitant]
     Active Substance: PREDNISOLONE
     Indication: Mixed connective tissue disease
     Route: 065
  9. PREDNISOLONE [Concomitant]
     Active Substance: PREDNISOLONE
     Route: 065
  10. PREDNISOLONE [Concomitant]
     Active Substance: PREDNISOLONE
     Route: 065
  11. BISOPROLOL [Concomitant]
     Active Substance: BISOPROLOL
     Route: 065
  12. ROSUVASTATIN [Concomitant]
     Active Substance: ROSUVASTATIN
     Route: 048
  13. ATOVAQUONE [Concomitant]
     Active Substance: ATOVAQUONE
     Route: 048
  14. ALFACALCIDOL [Concomitant]
     Active Substance: ALFACALCIDOL
     Route: 048
  15. VONOPRAZAN FUMARATE [Concomitant]
     Active Substance: VONOPRAZAN FUMARATE
     Route: 048
  16. DIETARY SUPPLEMENT\PROBIOTICS [Concomitant]
     Active Substance: DIETARY SUPPLEMENT\PROBIOTICS NOS
     Route: 048
  17. CLOSTRIDIUM BUTYRICUM [Concomitant]
     Route: 048
  18. SPIRONOLACTONE [Concomitant]
     Active Substance: SPIRONOLACTONE
     Route: 048
  19. AZILSARTAN KAMEDOXOMIL [Concomitant]
     Active Substance: AZILSARTAN KAMEDOXOMIL
     Route: 048
  20. BENIDIPINE HYDROCHLORIDE [Concomitant]
     Active Substance: BENIDIPINE HYDROCHLORIDE
     Route: 048
  21. FUROSEMIDE [Concomitant]
     Active Substance: FUROSEMIDE
     Route: 065
  22. AMLODIPINE [Concomitant]
     Active Substance: AMLODIPINE BESYLATE
     Route: 048
  23. ROSUVASTATIN [Concomitant]
     Active Substance: ROSUVASTATIN
     Route: 048
  24. TOLVAPTAN [Concomitant]
     Active Substance: TOLVAPTAN
     Route: 065
  25. TOLVAPTAN [Concomitant]
     Active Substance: TOLVAPTAN
     Route: 065
  26. AZOSEMIDE [Concomitant]
     Active Substance: AZOSEMIDE
     Route: 048
  27. AZOSEMIDE [Concomitant]
     Active Substance: AZOSEMIDE
     Route: 048
  28. CYCLOPHOSPHAMIDE [Concomitant]
     Active Substance: CYCLOPHOSPHAMIDE
     Indication: Mixed connective tissue disease
     Route: 042
  29. SACUBITRIL\VALSARTAN [Concomitant]
     Active Substance: SACUBITRIL\VALSARTAN
     Route: 048

REACTIONS (6)
  - Pulmonary hypertension [Recovering/Resolving]
  - Cardiac failure high output [Unknown]
  - Platelet count decreased [Recovering/Resolving]
  - Diarrhoea [Unknown]
  - Fluid retention [Unknown]
  - Dyspnoea exertional [Unknown]
